FAERS Safety Report 10024157 (Version 1)
Quarter: 2014Q1

REPORT INFORMATION
  Report Type: Spontaneous
  Country: US (occurrence: US)
  Receive Date: 20140320
  Receipt Date: 20140320
  Transmission Date: 20141002
  Serious: No
  Sender: FDA-Public Use
  Company Number: US-PFIZER INC-2014078233

PATIENT
  Age: 8 Decade
  Sex: Female
  Weight: 62 kg

DRUGS (1)
  1. PREMARIN [Suspect]
     Indication: MENOPAUSAL SYMPTOMS
     Dosage: UNK, 1X/DAY THREE WEEKS ON AND ONE WEEK OFF
     Route: 048

REACTIONS (1)
  - Dry skin [Unknown]
